FAERS Safety Report 7748401-8 (Version None)
Quarter: 2011Q3

REPORT INFORMATION
  Report Type: 
  Country: None (occurrence: None)
  Receive Date: 20110913
  Receipt Date: 20110830
  Transmission Date: 20111222
  Serious: Yes (Other)
  Sender: FDA-Public Use
  Company Number: DE-MYLANLABS-2011S1017953

PATIENT
  Age: 38 Year
  Sex: Female

DRUGS (1)
  1. TOPIRAMATE [Suspect]
     Indication: MIGRAINE
     Dosage: 25 MG/DAY
     Route: 065

REACTIONS (4)
  - CHOROIDAL DETACHMENT [None]
  - BLINDNESS TRANSIENT [None]
  - MYOPIA [None]
  - CHOROIDAL EFFUSION [None]
